FAERS Safety Report 19481491 (Version 1)
Quarter: 2021Q3

REPORT INFORMATION
  Report Type: Report from Study
  Country: IT (occurrence: IT)
  Receive Date: 20210701
  Receipt Date: 20210701
  Transmission Date: 20211014
  Serious: Yes (Hospitalization)
  Sender: FDA-Public Use
  Company Number: IT-CELGENEUS-ITA-20210607013

PATIENT
  Age: 84 Year
  Sex: Male

DRUGS (4)
  1. LUSPATERCEPT. [Suspect]
     Active Substance: LUSPATERCEPT
     Dosage: 1.33 MILLIGRAM/KILOGRAM
     Route: 058
     Dates: start: 20210524, end: 20210623
  2. LUSPATERCEPT. [Suspect]
     Active Substance: LUSPATERCEPT
     Indication: MYELODYSPLASTIC SYNDROME
     Dosage: 1 MILLIGRAM/KILOGRAM
     Route: 058
     Dates: start: 20210324
  3. TAMSULOSINA [Concomitant]
     Active Substance: TAMSULOSIN HYDROCHLORIDE
     Indication: PRODUCT USED FOR UNKNOWN INDICATION
     Dosage: .4 MILLIGRAM
     Route: 065
  4. DOBETIN [Concomitant]
     Indication: PRODUCT USED FOR UNKNOWN INDICATION
     Dosage: 5000 IU (INTERNATIONAL UNIT)
     Route: 065

REACTIONS (1)
  - Atrial fibrillation [Recovered/Resolved with Sequelae]

NARRATIVE: CASE EVENT DATE: 20210603
